FAERS Safety Report 10980041 (Version 2)
Quarter: 2020Q4

REPORT INFORMATION
  Report Type: Report from Study
  Country: None (occurrence: AU)
  Receive Date: 20150402
  Receipt Date: 20201115
  Transmission Date: 20210113
  Serious: Yes (Death, Other)
  Sender: FDA-Public Use
  Company Number: AU-ABBVIE-15P-008-1369775-00

PATIENT
  Sex: Male

DRUGS (2)
  1. DUODOPA [Suspect]
     Active Substance: CARBIDOPA\LEVODOPA
  2. DUODOPA [Suspect]
     Active Substance: CARBIDOPA\LEVODOPA
     Indication: PRODUCT USED FOR UNKNOWN INDICATION
     Dosage: FEW DAYS
     Route: 050
     Dates: start: 201503

REACTIONS (3)
  - Malaise [Unknown]
  - Malnutrition [Unknown]
  - Death [Fatal]

NARRATIVE: CASE EVENT DATE: 20150330
